FAERS Safety Report 9335866 (Version 1)
Quarter: 2013Q2

REPORT INFORMATION
  Report Type: Spontaneous
  Country: US (occurrence: US)
  Receive Date: 20130606
  Receipt Date: 20130606
  Transmission Date: 20140414
  Serious: Yes (Other)
  Sender: FDA-Public Use
  Company Number: US-AMGEN-USASP2012082093

PATIENT
  Age: 83 Year
  Sex: Female
  Weight: 71.2 kg

DRUGS (5)
  1. PROLIA [Suspect]
     Indication: OSTEOPOROSIS POSTMENOPAUSAL
     Dosage: UNK UNK, Q6MO
     Route: 058
     Dates: start: 20120529
  2. CHOLECALCIFEROL [Concomitant]
     Indication: VITAMIN D DEFICIENCY
     Dosage: 1000 UNK, QD
     Route: 048
     Dates: start: 201203
  3. ERGOCALCIFEROL [Concomitant]
     Indication: HYPOCALCAEMIA
     Dosage: 50000 UNK, QWK
     Route: 048
     Dates: start: 201202, end: 201205
  4. CALCIUM [Concomitant]
     Indication: HYPOCALCAEMIA
     Dosage: 600 MG, BID
     Route: 048
  5. CALCITRIOL [Concomitant]
     Indication: HYPOCALCAEMIA
     Dosage: 0.25 MG, QD
     Route: 048
     Dates: start: 201301

REACTIONS (1)
  - Hypocalcaemia [Recovered/Resolved]
